FAERS Safety Report 18475200 (Version 1)
Quarter: 2020Q4

REPORT INFORMATION
  Report Type: Spontaneous
  Country: FR (occurrence: FR)
  Receive Date: 20201106
  Receipt Date: 20201106
  Transmission Date: 20210114
  Serious: Yes (Other)
  Sender: FDA-Public Use
  Company Number: FR-009507513-2011FRA001460

PATIENT
  Age: 60 Year
  Sex: Female
  Weight: 68 kg

DRUGS (19)
  1. APREPITANT. [Suspect]
     Active Substance: APREPITANT
     Indication: PROPHYLAXIS OF NAUSEA AND VOMITING
     Route: 048
     Dates: start: 202009, end: 20201003
  2. PRINCI B [PYRIDOXINE/THIAMINE] [Concomitant]
     Active Substance: PYRIDOXINE\THIAMINE
     Dosage: UNKNOWN
     Route: 048
     Dates: start: 20201001, end: 20201007
  3. FLUCONAZOLE. [Concomitant]
     Active Substance: FLUCONAZOLE
     Dosage: UNKNOWN
     Route: 042
     Dates: start: 20201001, end: 20201009
  4. AMLODIPINE [Suspect]
     Active Substance: AMLODIPINE BESYLATE
     Indication: HYPERTENSION
     Dosage: 5 MILLIGRAM, QD
     Route: 048
     Dates: start: 20200902, end: 20201005
  5. POLARAMINE [Concomitant]
     Active Substance: DEXCHLORPHENIRAMINE MALEATE
     Dosage: UNKNOWN, 5 MG/1 ML
     Route: 042
  6. NEFOPAM [Concomitant]
     Active Substance: NEFOPAM
     Dosage: UNKNOWN
     Route: 042
     Dates: start: 20201002
  7. LOSARTAN POTASSIUM. [Concomitant]
     Active Substance: LOSARTAN POTASSIUM
     Dosage: UNKNOWN
     Route: 048
  8. MYCOPHENOLATE MOFETIL. [Concomitant]
     Active Substance: MYCOPHENOLATE MOFETIL
     Dosage: UNKNOWN
     Route: 048
     Dates: start: 20201001
  9. METOCLOPRAMIDE. [Suspect]
     Active Substance: METOCLOPRAMIDE
     Indication: PROPHYLAXIS OF NAUSEA AND VOMITING
     Route: 042
     Dates: start: 202009, end: 20201005
  10. VALACYCLOVIR HYDROCHLORIDE. [Concomitant]
     Active Substance: VALACYCLOVIR HYDROCHLORIDE
     Dosage: UNKNOWN
     Route: 048
     Dates: start: 202009, end: 20201005
  11. TIENAM 500MG/500MG, POUDRE POUR PERFUSION [Suspect]
     Active Substance: CILASTATIN SODIUM\IMIPENEM
     Indication: ESCHERICHIA INFECTION
     Route: 042
     Dates: start: 20201002, end: 20201003
  12. TENOFOVIR DISOPROXIL [Concomitant]
     Active Substance: TENOFOVIR DISOPROXIL
     Dosage: UNKNOWN
     Route: 048
     Dates: start: 20200916
  13. TITANOREINE (CARRAGEENAN (+) LIDOCAINE (+) TITANIUM DIOXIDE (+) ZINC O [Concomitant]
     Dosage: UNKNOWN
     Route: 054
     Dates: end: 20201003
  14. LEVOTHYROXINE SODIUM. [Concomitant]
     Active Substance: LEVOTHYROXINE SODIUM
     Dosage: UNKNOWN
     Route: 048
  15. TIORFAN [Suspect]
     Active Substance: RACECADOTRIL
     Indication: DIARRHOEA
     Dosage: 200 MILLIGRAM, PRN
     Route: 048
     Dates: start: 202009, end: 20201003
  16. ONDANSETRON [Suspect]
     Active Substance: ONDANSETRON
     Indication: PROPHYLAXIS OF NAUSEA AND VOMITING
     Route: 042
     Dates: start: 202009, end: 20201004
  17. CHOLURSO [Concomitant]
     Active Substance: URSODIOL
     Dosage: UNKNOWN
     Route: 048
  18. CYCLOSPORINE. [Concomitant]
     Active Substance: CYCLOSPORINE
     Dosage: UNKNOWN
     Route: 042
     Dates: start: 20201001
  19. HYDROCORTISONE. [Concomitant]
     Active Substance: HYDROCORTISONE
     Dosage: UNKNOWN
     Route: 042
     Dates: start: 20200930

REACTIONS (2)
  - Hallucinations, mixed [Recovered/Resolved]
  - Confusional state [Recovered/Resolved]

NARRATIVE: CASE EVENT DATE: 20201003
